FAERS Safety Report 14539579 (Version 1)
Quarter: 2018Q1

REPORT INFORMATION
  Report Type: Spontaneous
  Country: GB (occurrence: GB)
  Receive Date: 20180216
  Receipt Date: 20180216
  Transmission Date: 20180509
  Serious: Yes (Death, Hospitalization)
  Sender: FDA-Public Use
  Company Number: GB-CELGENEUS-GBR-20180201343

PATIENT
  Age: 84 Year
  Sex: Female
  Weight: 57.5 kg

DRUGS (1)
  1. AZACITIDINE. [Suspect]
     Active Substance: AZACITIDINE
     Indication: ACUTE MYELOID LEUKAEMIA
     Route: 041
     Dates: start: 201601

REACTIONS (3)
  - Infection [Unknown]
  - Acute kidney injury [Recovered/Resolved]
  - Acute myeloid leukaemia [Fatal]
